FAERS Safety Report 17870394 (Version 1)
Quarter: 2020Q2

REPORT INFORMATION
  Report Type: Spontaneous
  Country: US (occurrence: US)
  Receive Date: 20200606
  Receipt Date: 20200606
  Transmission Date: 20200714
  Serious: Yes (Life-Threatening, Other)
  Sender: FDA-Public Use
  Company Number: None

PATIENT
  Age: 37 Year
  Sex: Female
  Weight: 69.75 kg

DRUGS (4)
  1. PROGESTERONE IN SESAME OIL [Suspect]
     Active Substance: PROGESTERONE
     Indication: INFERTILITY
     Route: 030
     Dates: start: 20200524, end: 20200524
  2. BAYER 81 MG ASPIRIN [Concomitant]
  3. FOLIC ACID. [Concomitant]
     Active Substance: FOLIC ACID
  4. PRENATAL VITAMIN [Concomitant]
     Active Substance: VITAMINS

REACTIONS (7)
  - Burning sensation [None]
  - Loss of consciousness [None]
  - Anaphylactic reaction [None]
  - Injection site swelling [None]
  - Movement disorder [None]
  - Injection site pain [None]
  - Vomiting [None]

NARRATIVE: CASE EVENT DATE: 20200524
